FAERS Safety Report 9421825 (Version 1)
Quarter: 2013Q3

REPORT INFORMATION
  Report Type: Spontaneous
  Country: BR (occurrence: BR)
  Receive Date: 20130726
  Receipt Date: 20130726
  Transmission Date: 20140515
  Serious: Yes (Other)
  Sender: FDA-Public Use
  Company Number: PHBS2008BR06159

PATIENT
  Age: 48 Year
  Sex: Male

DRUGS (1)
  1. IMATINIB [Suspect]
     Indication: CHRONIC MYELOID LEUKAEMIA
     Dosage: 600 MG, UNK

REACTIONS (4)
  - Cardiotoxicity [Unknown]
  - Ejection fraction decreased [Unknown]
  - Brain natriuretic peptide increased [Unknown]
  - Oedema [Unknown]
